FAERS Safety Report 16902552 (Version 1)
Quarter: 2019Q4

REPORT INFORMATION
  Report Type: Spontaneous
  Country: JP (occurrence: JP)
  Receive Date: 20191010
  Receipt Date: 20191010
  Transmission Date: 20200122
  Serious: Yes (Other)
  Sender: FDA-Public Use
  Company Number: JP-PFIZER INC-2019432884

PATIENT
  Age: 79 Year
  Sex: Female

DRUGS (15)
  1. SELENICA R [Concomitant]
     Active Substance: VALPROATE SODIUM
     Dosage: 2 G, UNK
  2. AMLODIPINE [Concomitant]
     Active Substance: AMLODIPINE BESYLATE
     Dosage: UNK
  3. BONALON [Concomitant]
     Active Substance: ALENDRONATE SODIUM
     Dosage: 1 DF, WEEKLY
  4. LYRICA [Interacting]
     Active Substance: PREGABALIN
     Dosage: 50 MG, DAILY
     Dates: start: 20190320
  5. ALEVIATIN [PHENYTOIN] [Concomitant]
     Active Substance: PHENYTOIN
     Dosage: 3 G, UNK
  6. PENTASA [Concomitant]
     Active Substance: MESALAMINE
     Dosage: 8 DF, UNK
  7. LYRICA [Interacting]
     Active Substance: PREGABALIN
     Dosage: 75 MG, DAILY
     Dates: start: 20170828
  8. CLOPIDOGREL [Concomitant]
     Active Substance: CLOPIDOGREL BISULFATE
     Dosage: UNK
  9. PITAVASTATIN. [Concomitant]
     Active Substance: PITAVASTATIN CALCIUM
     Dosage: UNK
  10. BACTRAMIN [Concomitant]
     Active Substance: SULFAMETHOXAZOLE\TRIMETHOPRIM
     Dosage: UNK
  11. PARIET [Concomitant]
     Active Substance: RABEPRAZOLE SODIUM
     Dosage: UNK
  12. DIOVAN [Concomitant]
     Active Substance: VALSARTAN
     Dosage: UNK
  13. LYRICA [Suspect]
     Active Substance: PREGABALIN
     Dosage: 100 MG, DAILY
     Dates: start: 20170516, end: 20170802
  14. PREDONINE [Concomitant]
     Active Substance: PREDNISOLONE
  15. LYRICA [Interacting]
     Active Substance: PREGABALIN
     Dosage: 100 MG, DAILY
     Dates: start: 20181130

REACTIONS (6)
  - Pain [Unknown]
  - Weight increased [Unknown]
  - Drug interaction [Unknown]
  - Speech disorder [Not Recovered/Not Resolved]
  - Eyelid disorder [Unknown]
  - Basal ganglia infarction [Not Recovered/Not Resolved]

NARRATIVE: CASE EVENT DATE: 201708
